FAERS Safety Report 24035675 (Version 2)
Quarter: 2024Q3

REPORT INFORMATION
  Report Type: Spontaneous
  Country: CA (occurrence: CA)
  Receive Date: 20240701
  Receipt Date: 20240823
  Transmission Date: 20241017
  Serious: Yes (Other)
  Sender: PFIZER
  Company Number: CA-PFIZER INC-202400201775

PATIENT
  Age: 48 Year
  Sex: Female

DRUGS (1)
  1. ABRILADA [Suspect]
     Active Substance: ADALIMUMAB-AFZB
     Indication: Uveitis
     Dosage: 1 DF, 80 MG AT WEEK 0 AND THEN 40MG EVERY OTHER WEEK
     Route: 058
     Dates: start: 20230615

REACTIONS (1)
  - Blindness [Not Recovered/Not Resolved]
